FAERS Safety Report 24371690 (Version 1)
Quarter: 2024Q3

REPORT INFORMATION
  Report Type: Spontaneous
  Country: US (occurrence: None)
  Receive Date: 20240926
  Receipt Date: 20240926
  Transmission Date: 20241016
  Serious: Yes (Hospitalization)
  Sender: Public
  Company Number: None

PATIENT
  Sex: Female

DRUGS (3)
  1. OXBRYTA [Suspect]
     Active Substance: VOXELOTOR
     Indication: Sickle cell disease
     Dosage: FREQUENCY : DAILY;?
     Route: 048
     Dates: start: 202106
  2. OXBRYTA [Suspect]
     Active Substance: VOXELOTOR
     Indication: Sickle cell anaemia with crisis
  3. DUPILUMAB [Concomitant]
     Active Substance: DUPILUMAB

REACTIONS (1)
  - Hospitalisation [None]
